FAERS Safety Report 7290100-3 (Version None)
Quarter: 2011Q1

REPORT INFORMATION
  Report Type: 
  Country: None (occurrence: None)
  Receive Date: 20110214
  Receipt Date: 20110203
  Transmission Date: 20110831
  Serious: Yes (Death, Hospitalization)
  Sender: FDA-Public Use
  Company Number: US-BRISTOL-MYERS SQUIBB COMPANY-15540099

PATIENT
  Age: 75 Year
  Sex: Female

DRUGS (3)
  1. PACLITAXEL [Suspect]
     Indication: NON-SMALL CELL LUNG CANCER
     Dosage: ON DAY 1 AND 22 OF CYCLES 1 AND 2 LAST DOSE ON 6JUL10(CYCLE 2,DAY 34)
     Route: 042
     Dates: start: 20100422, end: 20100706
  2. CARBOPLATIN [Suspect]
     Indication: NON-SMALL CELL LUNG CANCER
     Dosage: 1 DF:AUC 6 ON DAY 1 AND 22 CYCLES 1 AND 2 LAST DOSE ON 6JUL10(CYCLE 2,DAY 34)
     Route: 042
     Dates: start: 20100422, end: 20100706
  3. CETUXIMAB [Suspect]
     Indication: NON-SMALL CELL LUNG CANCER
     Dosage: 22APR10(1D)CY 1,DAY1  250MG/M2:ONG (DAY 1,8,15,22,29,AND 36) LAST DOSE:18OT10(CY 4,DAY 29)
     Route: 042
     Dates: start: 20100422

REACTIONS (2)
  - LUNG INFECTION [None]
  - PNEUMONITIS [None]
